FAERS Safety Report 18714293 (Version 1)
Quarter: 2021Q1

REPORT INFORMATION
  Report Type: Spontaneous
  Country: US (occurrence: US)
  Receive Date: 20210108
  Receipt Date: 20210108
  Transmission Date: 20210419
  Serious: Yes (Other)
  Sender: FDA-Public Use
  Company Number: US-ALEMBIC PHARMACUETICALS LIMITED-2020SCAL000538

PATIENT

DRUGS (1)
  1. TERIFLUNOMIDE. [Suspect]
     Active Substance: TERIFLUNOMIDE
     Indication: RELAPSING-REMITTING MULTIPLE SCLEROSIS
     Dosage: UNK

REACTIONS (5)
  - Multiple sclerosis relapse [Recovering/Resolving]
  - Blindness [Recovering/Resolving]
  - Optic neuritis [Recovering/Resolving]
  - Demyelination [Recovering/Resolving]
  - Rebound effect [Recovering/Resolving]
